FAERS Safety Report 15114203 (Version 1)
Quarter: 2018Q3

REPORT INFORMATION
  Report Type: Report from Study
  Country: FI (occurrence: US)
  Receive Date: 20180706
  Receipt Date: 20180706
  Transmission Date: 20181010
  Serious: Yes (Death)
  Sender: FDA-Public Use
  Company Number: FI-PFIZER INC-2018272231

PATIENT
  Age: 28 Year
  Sex: Male

DRUGS (4)
  1. HYDROCODONE [Suspect]
     Active Substance: HYDROCODONE
     Dosage: UNK
  2. ALPRAZOLAM. [Suspect]
     Active Substance: ALPRAZOLAM
     Dosage: UNK
  3. COCAINE [Suspect]
     Active Substance: COCAINE
     Dosage: UNK
  4. ALCOHOL. [Suspect]
     Active Substance: ALCOHOL
     Dosage: UNK

REACTIONS (2)
  - Cognitive disorder [Fatal]
  - Accident [Fatal]

NARRATIVE: CASE EVENT DATE: 20150704
